FAERS Safety Report 13830033 (Version 3)
Quarter: 2024Q3

REPORT INFORMATION
  Report Type: Spontaneous
  Country: FR (occurrence: FR)
  Receive Date: 20170803
  Receipt Date: 20240907
  Transmission Date: 20241016
  Serious: Yes (Death, Other)
  Sender: ASTELLAS
  Company Number: FR-ASTELLAS-2007EU002031

PATIENT
  Age: 38 Year
  Sex: Female

DRUGS (18)
  1. PROGRAF [Suspect]
     Active Substance: TACROLIMUS
     Indication: Transplant
     Dosage: UNK UNK, UNKNOWN FREQ.
     Route: 048
     Dates: start: 20051127
  2. PROGRAF [Suspect]
     Active Substance: TACROLIMUS
     Indication: Immunosuppression
     Dosage: 3 MG, ONCE DAILY
     Route: 065
  3. PROGRAF [Suspect]
     Active Substance: TACROLIMUS
     Dosage: 6-12 NG/ML
     Route: 065
  4. PROTOPIC [Suspect]
     Active Substance: TACROLIMUS
     Indication: Transplant rejection
     Dosage: UNK, UNKNOWN FREQ.
     Route: 061
  5. SIROLIMUS [Suspect]
     Active Substance: SIROLIMUS
     Indication: Immunosuppression
     Dosage: UNK UNK, UNKNOWN FREQ.
     Route: 065
  6. SIROLIMUS [Suspect]
     Active Substance: SIROLIMUS
     Indication: Transplant
     Dosage: UNK UNK, UNKNOWN FREQ.
     Route: 065
  7. SIROLIMUS [Suspect]
     Active Substance: SIROLIMUS
     Dosage: TARGETED TROUGH LEVEL:6^-12 NG/ML
     Route: 065
     Dates: start: 2006
  8. MYCOPHENOLATE MOFETIL [Suspect]
     Active Substance: MYCOPHENOLATE MOFETIL
     Indication: Immunosuppression
     Dosage: UNK UNK, UNKNOWN FREQ.
     Route: 065
     Dates: start: 20051127
  9. MYCOPHENOLATE MOFETIL [Suspect]
     Active Substance: MYCOPHENOLATE MOFETIL
     Indication: Transplant
     Dosage: 2 G, ONCE DAILY
     Route: 065
  10. MYCOPHENOLATE MOFETIL [Suspect]
     Active Substance: MYCOPHENOLATE MOFETIL
     Dosage: 1.5 MG, ONCE DAILY
     Route: 065
  11. MYCOPHENOLATE MOFETIL [Suspect]
     Active Substance: MYCOPHENOLATE MOFETIL
     Dosage: 1500 MG, /DAY
     Route: 065
  12. PREDNISONE [Suspect]
     Active Substance: PREDNISONE
     Indication: Transplant
     Dosage: UNK UNK, UNKNOWN FREQ.
     Route: 065
     Dates: start: 20051127
  13. PREDNISONE [Suspect]
     Active Substance: PREDNISONE
     Indication: Immunosuppression
     Dosage: 10 MG, ONCE DAILY
     Route: 065
  14. PREDNISONE [Suspect]
     Active Substance: PREDNISONE
     Dosage: 5 MG, /DAY
     Route: 065
  15. CLOBETASOL [Concomitant]
     Active Substance: CLOBETASOL
     Indication: Transplant rejection
     Dosage: UNK UNK, UNKNOWN FREQ.
     Route: 061
  16. VALACYCLOVIR HYDROCHLORIDE [Concomitant]
     Active Substance: VALACYCLOVIR HYDROCHLORIDE
     Indication: Herpes simplex
     Dosage: UNK UNK, UNKNOWN FREQ.
     Route: 048
  17. ACYCLOVIR [Concomitant]
     Active Substance: ACYCLOVIR
     Indication: Herpes simplex
     Dosage: UNK UNK, UNKNOWN FREQ.
     Route: 061
  18. THYMOCYTE IMMUNE GLOBULIN NOS [Concomitant]
     Active Substance: THYMOCYTE IMMUNE GLOBULIN NOS
     Indication: Transplant
     Dosage: UNK UNK, UNKNOWN FREQ.
     Route: 065

REACTIONS (33)
  - Small cell lung cancer [Fatal]
  - Lung carcinoma cell type unspecified recurrent [Fatal]
  - Lung disorder [Recovered/Resolved]
  - Transplant rejection [Recovering/Resolving]
  - Thrombotic microangiopathy [Recovered/Resolved]
  - Cervix carcinoma stage 0 [Unknown]
  - Herpes virus infection [Recovered/Resolved]
  - Renal impairment [Unknown]
  - Molluscum contagiosum [Unknown]
  - Hypertension [Unknown]
  - Blood triglycerides increased [Unknown]
  - Cholangitis [Unknown]
  - Lipids increased [Unknown]
  - Papilloma viral infection [Unknown]
  - Renal impairment [Recovered/Resolved]
  - Graft loss [Unknown]
  - Epidermal necrosis [Unknown]
  - Arterial thrombosis [Unknown]
  - Donor specific antibody present [Unknown]
  - Vasculitis [Unknown]
  - Thrombosis [Unknown]
  - Lip operation [Unknown]
  - Dyskinesia [Unknown]
  - Deformity [Unknown]
  - Transplant rejection [Recovered/Resolved]
  - Transplant rejection [Recovered/Resolved]
  - Transplant rejection [Unknown]
  - Transplant rejection [Unknown]
  - Transplant rejection [Unknown]
  - Renal failure [Recovered/Resolved]
  - Loss of personal independence in daily activities [Unknown]
  - Dysarthria [Unknown]
  - Off label use [Unknown]

NARRATIVE: CASE EVENT DATE: 20100901
